FAERS Safety Report 4414763-2 (Version None)
Quarter: 2004Q3

REPORT INFORMATION
  Report Type: 
  Country: None (occurrence: None)
  Receive Date: 20040804
  Receipt Date: 20030828
  Transmission Date: 20050211
  Serious: No
  Sender: FDA-Public Use
  Company Number: US-BRISTOL-MYERS SQUIBB COMPANY-12368700

PATIENT
  Age: 49 Year
  Sex: Female

DRUGS (8)
  1. GLUCOVANCE [Suspect]
     Indication: DIABETES MELLITUS NON-INSULIN-DEPENDENT
     Route: 048
     Dates: start: 20030814
  2. TOPROL-XL [Concomitant]
  3. PAXIL CR [Concomitant]
  4. DYAZIDE [Concomitant]
  5. SYNTHROID [Concomitant]
  6. DETROL LA [Concomitant]
  7. PREVACID [Concomitant]
  8. ZOCOR [Concomitant]

REACTIONS (1)
  - BLOOD GLUCOSE DECREASED [None]
